FAERS Safety Report 16522593 (Version 2)
Quarter: 2019Q3

REPORT INFORMATION
  Report Type: Report from Study
  Country: IT (occurrence: IT)
  Receive Date: 20190703
  Receipt Date: 20190731
  Transmission Date: 20191004
  Serious: Yes (Other)
  Sender: FDA-Public Use
  Company Number: IT-ACCORD-136435

PATIENT
  Age: 58 Year
  Sex: Female
  Weight: 83 kg

DRUGS (1)
  1. FLUOROURACIL. [Suspect]
     Active Substance: FLUOROURACIL
     Indication: VAGINAL CANCER
     Route: 042

REACTIONS (1)
  - Extravasation [Recovering/Resolving]

NARRATIVE: CASE EVENT DATE: 20180923
